FAERS Safety Report 8245559-1 (Version None)
Quarter: 2012Q1

REPORT INFORMATION
  Report Type: 
  Country: None (occurrence: None)
  Receive Date: 20120329
  Receipt Date: 20111218
  Transmission Date: 20120608
  Serious: Yes (Other)
  Sender: FDA-Public Use
  Company Number: PHHY2011LB115970

PATIENT
  Age: 75 Year
  Sex: Female

DRUGS (3)
  1. ZOLEDRONOC ACID [Suspect]
     Route: 042
     Dates: start: 20111204
  2. CALCIUM CARBONATE [Concomitant]
     Dosage: 1 DF, QD
     Route: 048
  3. TYLENOL ARTHRITIS [Concomitant]
     Dosage: 2 DF, PRN, 2TAB PRN
     Route: 048

REACTIONS (2)
  - FALL [None]
  - LOWER LIMB FRACTURE [None]
